FAERS Safety Report 8016392-0 (Version None)
Quarter: 2011Q4

REPORT INFORMATION
  Report Type: 
  Country: None (occurrence: None)
  Receive Date: 20111230
  Receipt Date: 20111228
  Transmission Date: 20120403
  Serious: Yes (Hospitalization)
  Sender: FDA-Public Use
  Company Number: FR-ROCHE-1019256

PATIENT
  Sex: Female

DRUGS (1)
  1. VEMURAFENIB [Suspect]
     Indication: METASTATIC MALIGNANT MELANOMA
     Route: 048
     Dates: start: 20111126

REACTIONS (3)
  - PYREXIA [None]
  - PRURITUS [None]
  - TOXIC SKIN ERUPTION [None]
